FAERS Safety Report 7402918-4 (Version None)
Quarter: 2011Q1

REPORT INFORMATION
  Report Type: 
  Country: None (occurrence: None)
  Receive Date: 20110331
  Receipt Date: 20110321
  Transmission Date: 20110831
  Serious: Yes (Hospitalization)
  Sender: FDA-Public Use
  Company Number: JPI-P-014290

PATIENT
  Age: 60 Year
  Sex: Male
  Weight: 74.8435 kg

DRUGS (6)
  1. XYREM [Suspect]
     Indication: SLEEP DISORDER
     Dosage: (2 IN 1 D),ORAL ; 6 GM (3 GM,2 IN 1 D),ORAL ; 6 GM (3 GM,2 IN 1 D),ORAL
     Route: 048
     Dates: start: 20041001
  2. XYREM [Suspect]
     Indication: SLEEP DISORDER
     Dosage: (2 IN 1 D),ORAL ; 6 GM (3 GM,2 IN 1 D),ORAL ; 6 GM (3 GM,2 IN 1 D),ORAL
     Route: 048
     Dates: end: 20110201
  3. XYREM [Suspect]
     Indication: SLEEP DISORDER
     Dosage: (2 IN 1 D),ORAL ; 6 GM (3 GM,2 IN 1 D),ORAL ; 6 GM (3 GM,2 IN 1 D),ORAL
     Route: 048
     Dates: start: 20110301
  4. UNSPECIFIED CONCOMITANT MEDICATIONS [Concomitant]
  5. ALPRAZOLAM [Concomitant]
  6. ARIPIPRAZOLE [Concomitant]

REACTIONS (3)
  - FALL [None]
  - HEAD INJURY [None]
  - CERVICAL VERTEBRAL FRACTURE [None]
